FAERS Safety Report 6229786-0 (Version None)
Quarter: 2009Q2

REPORT INFORMATION
  Report Type: 
  Country: None (occurrence: None)
  Receive Date: 20090615
  Receipt Date: 20090603
  Transmission Date: 20091009
  Serious: Yes (Other)
  Sender: FDA-Public Use
  Company Number: US-PFIZER INC-2009206745

PATIENT
  Sex: Female
  Weight: 45 kg

DRUGS (6)
  1. GENOTROPIN [Suspect]
     Indication: HYPOPITUITARISM
     Dosage: 1.5 MG, 1X/DAY
     Dates: start: 20010101, end: 20090430
  2. PREDNISONE [Concomitant]
     Dosage: UNK
     Dates: start: 19991201
  3. LEVOTHYROXINE [Concomitant]
     Dosage: UNK
     Dates: start: 19991201
  4. ESTRACE [Concomitant]
     Dosage: UNK
     Dates: start: 20070101
  5. CONCERTA [Concomitant]
     Dosage: UNK
  6. DDAVP [Concomitant]
     Dosage: UNK
     Dates: start: 19990101

REACTIONS (6)
  - BRAIN NEOPLASM [None]
  - CONVULSION [None]
  - EYELID PTOSIS [None]
  - IIIRD NERVE PARESIS [None]
  - NEOPLASM RECURRENCE [None]
  - STRABISMUS [None]
